FAERS Safety Report 23162340 (Version 4)
Quarter: 2024Q1

REPORT INFORMATION
  Report Type: Report from Study
  Country: US (occurrence: US)
  Receive Date: 20231109
  Receipt Date: 20240328
  Transmission Date: 20240410
  Serious: Yes (Hospitalization, Other)
  Sender: FDA-Public Use
  Company Number: US-JAZZ PHARMACEUTICALS-2023-US-022536

PATIENT
  Age: 25 Year
  Sex: Male
  Weight: 52.5 kg

DRUGS (4)
  1. EPIDIOLEX [Suspect]
     Active Substance: CANNABIDIOL
     Indication: Product used for unknown indication
     Dosage: 4 MILLILITER, BID
     Route: 048
  2. EPIDIOLEX [Suspect]
     Active Substance: CANNABIDIOL
     Dosage: 4 MILLILITER, BID
     Route: 048
  3. EPIDIOLEX [Suspect]
     Active Substance: CANNABIDIOL
     Dosage: 4 MILLILITER, BID
     Route: 048
  4. TOBRAMYCIN [Concomitant]
     Active Substance: TOBRAMYCIN
     Indication: Product used for unknown indication
     Dosage: 300 MILLIGRAM

REACTIONS (5)
  - Pneumonia [Unknown]
  - Seizure [Unknown]
  - Tracheitis [Unknown]
  - Seizure [Unknown]
  - Product administration interrupted [Unknown]

NARRATIVE: CASE EVENT DATE: 20240322
